FAERS Safety Report 24777239 (Version 4)
Quarter: 2025Q1

REPORT INFORMATION
  Report Type: Report from Study
  Country: GB (occurrence: GB)
  Receive Date: 20241226
  Receipt Date: 20250218
  Transmission Date: 20250409
  Serious: Yes (Other)
  Sender: NOVARTIS
  Company Number: GB-002147023-NVSC2024GB243259

PATIENT
  Age: 36 Year
  Sex: Male

DRUGS (2)
  1. KESIMPTA [Suspect]
     Active Substance: OFATUMUMAB
     Indication: Relapsing-remitting multiple sclerosis
     Dosage: 20 MG, QW
     Route: 058
     Dates: start: 20241213
  2. KESIMPTA [Suspect]
     Active Substance: OFATUMUMAB
     Dosage: 20 MG, QMO
     Route: 058

REACTIONS (8)
  - Hemiparesis [Recovering/Resolving]
  - Multiple sclerosis relapse [Unknown]
  - Influenza like illness [Recovered/Resolved]
  - Nausea [Recovered/Resolved]
  - Headache [Recovered/Resolved]
  - Muscular weakness [Not Recovered/Not Resolved]
  - Nasopharyngitis [Recovered/Resolved]
  - Fatigue [Recovered/Resolved]

NARRATIVE: CASE EVENT DATE: 20241213
